FAERS Safety Report 9384666 (Version 1)
Quarter: 2013Q3

REPORT INFORMATION
  Report Type: Spontaneous
  Country: FR (occurrence: FR)
  Receive Date: 20130705
  Receipt Date: 20130705
  Transmission Date: 20140515
  Serious: Yes (Hospitalization)
  Sender: FDA-Public Use
  Company Number: FR-PFIZER INC-2013197916

PATIENT
  Age: 70 Year
  Sex: Female

DRUGS (8)
  1. EUPANTOL [Suspect]
     Dosage: UNK
     Route: 048
     Dates: end: 201305
  2. AVLOCARDYL [Suspect]
     Dosage: UNK
     Route: 048
     Dates: start: 20130326, end: 201305
  3. ADENURIC [Suspect]
     Indication: HYPERURICAEMIA
     Dosage: UNK
     Route: 048
     Dates: start: 20130326, end: 201305
  4. VITAMIN B1 [Concomitant]
     Dosage: UNK
  5. VITAMIN B6 [Concomitant]
     Dosage: UNK
  6. CACIT VITAMINE D3 [Concomitant]
     Dosage: UNK
  7. ALPRAZOLAM [Concomitant]
     Dosage: UNK
  8. MACROGOL [Concomitant]
     Dosage: UNK

REACTIONS (3)
  - Electrocardiogram QT prolonged [Not Recovered/Not Resolved]
  - Tachycardia [Not Recovered/Not Resolved]
  - Cell death [Unknown]
